FAERS Safety Report 7724838-8 (Version None)
Quarter: 2011Q3

REPORT INFORMATION
  Report Type: 
  Country: None (occurrence: None)
  Receive Date: 20110901
  Receipt Date: 20110823
  Transmission Date: 20111222
  Serious: Yes (Death, Hospitalization, Other)
  Sender: FDA-Public Use
  Company Number: US-BAYER-201041848NA

PATIENT
  Age: 73 Year
  Sex: Male
  Weight: 85 kg

DRUGS (29)
  1. HEPARIN [Concomitant]
     Route: 042
  2. ALBUMIN (HUMAN) [Concomitant]
     Dosage: 25 GM
     Route: 042
     Dates: start: 20040322, end: 20040322
  3. TRASYLOL [Suspect]
     Indication: CORONARY ARTERY BYPASS
     Dosage: UNK TEST DOSE
     Route: 042
     Dates: start: 20040322, end: 20040322
  4. TRASYLOL [Suspect]
     Dosage: 50 CC/HOUR
     Route: 042
     Dates: start: 20040322, end: 20040322
  5. PROTAMINE [Concomitant]
     Dosage: 600 MG
     Route: 042
     Dates: start: 20040322, end: 20040322
  6. NITROGLYCERIN [Concomitant]
     Dosage: UNK
     Route: 042
     Dates: start: 20040322, end: 20040322
  7. MORPHINE [Concomitant]
     Dosage: PRN
  8. MILRINONE [Concomitant]
     Dosage: UNK
     Dates: start: 20040322
  9. ISOPTIN [Concomitant]
     Dosage: 180 MG, BID
     Route: 048
  10. CORDARONE [Concomitant]
     Dosage: 200 MG, TID
     Route: 048
  11. LIPITOR [Concomitant]
     Dosage: 10 MG, QD
     Route: 048
  12. MANNITOL [Concomitant]
     Dosage: 25 GM
     Route: 042
     Dates: start: 20040322
  13. PLAVIX [Concomitant]
     Dosage: 75 MG, QD
     Route: 048
     Dates: start: 20040310, end: 20040315
  14. METOPROLOL TARTRATE [Concomitant]
     Dosage: 75 MG, TID
     Route: 048
  15. RED BLOOD CELLS [Concomitant]
     Dosage: 1 UNIT
  16. AMBIEN [Concomitant]
     Dosage: 5-10 MG AT HS
     Route: 048
  17. DOPAMINE HCL [Concomitant]
     Dosage: UNK
     Route: 042
     Dates: start: 20040322
  18. ZOCOR [Concomitant]
     Dosage: 20 MG, HS
     Route: 048
  19. HYDRALAZINE HCL [Concomitant]
     Dosage: 100 MG, QID
     Route: 048
  20. NITROGLYCERIN [Concomitant]
     Dosage: 0.4 MG, PRN
     Route: 060
  21. TRASYLOL [Suspect]
     Dosage: 200 ML LOADING DOSE
     Route: 042
     Dates: start: 20040322, end: 20040322
  22. CARDURA [Concomitant]
     Dosage: 40 MG, BID
     Route: 048
  23. LASIX [Concomitant]
     Dosage: 40 MG, QD
     Route: 048
  24. LOPRESSOR [Concomitant]
     Dosage: 75 MG, BID
     Route: 048
  25. PROTONIX [Concomitant]
     Dosage: 40 MG, QD
     Route: 048
  26. ASPIRIN [Concomitant]
     Dosage: 325 MG, QD
     Route: 048
  27. POTASSIUM CHLORIDE [Concomitant]
     Dosage: 10 MEQ
     Route: 048
  28. HEPARIN [Concomitant]
     Dosage: 58,000 UNITS
     Route: 042
     Dates: start: 20040324
  29. VISIPAQUE [Concomitant]
     Dosage: 165 CC
     Route: 042
     Dates: start: 20040315

REACTIONS (13)
  - UNEVALUABLE EVENT [None]
  - PAIN [None]
  - ANXIETY [None]
  - MYOCARDIAL INFARCTION [None]
  - RENAL IMPAIRMENT [None]
  - STRESS [None]
  - DEATH [None]
  - MULTI-ORGAN FAILURE [None]
  - RENAL FAILURE [None]
  - RENAL INJURY [None]
  - EMOTIONAL DISTRESS [None]
  - INJURY [None]
  - FEAR [None]
